FAERS Safety Report 10264302 (Version 1)
Quarter: 2014Q2

REPORT INFORMATION
  Report Type: Spontaneous
  Country: ZA (occurrence: ZA)
  Receive Date: 20140627
  Receipt Date: 20140627
  Transmission Date: 20141212
  Serious: Yes (Other)
  Sender: FDA-Public Use
  Company Number: ZA-ABBVIE-14P-143-1252780-00

PATIENT
  Sex: 0

DRUGS (1)
  1. EPILIM [Suspect]
     Indication: CONVULSION
     Route: 048

REACTIONS (1)
  - Central-alveolar hypoventilation [Recovering/Resolving]
